FAERS Safety Report 26092031 (Version 1)
Quarter: 2025Q4

REPORT INFORMATION
  Report Type: Spontaneous
  Country: BR (occurrence: BR)
  Receive Date: 20251126
  Receipt Date: 20251126
  Transmission Date: 20260117
  Serious: Yes (Other)
  Sender: ALEXION PHARMACEUTICALS
  Company Number: BR-AstraZeneca-CH-00998626A

PATIENT
  Age: 55 Year
  Sex: Female

DRUGS (1)
  1. DAPAGLIFLOZIN [Suspect]
     Active Substance: DAPAGLIFLOZIN
     Indication: Diabetes mellitus
     Dosage: 10 MILLIGRAM, QD
     Dates: start: 202508

REACTIONS (5)
  - Drug ineffective [Unknown]
  - Blood glucose increased [Unknown]
  - Diabetic metabolic decompensation [Unknown]
  - Abdominal pain upper [Unknown]
  - Product label issue [Unknown]

NARRATIVE: CASE EVENT DATE: 20251001
